FAERS Safety Report 19148455 (Version 2)
Quarter: 2022Q4

REPORT INFORMATION
  Report Type: Spontaneous
  Country: FR (occurrence: FR)
  Receive Date: 20210417
  Receipt Date: 20221122
  Transmission Date: 20230112
  Serious: Yes (Hospitalization, Other)
  Sender: FDA-Public Use
  Company Number: FR-SA-2021SA109699

PATIENT
  Age: 72 Year
  Sex: Male
  Weight: 90 kg

DRUGS (15)
  1. ONDANSETRON [Suspect]
     Active Substance: ONDANSETRON
     Indication: Prostate cancer
     Dosage: 8 MILLIGRAM CYCLE (CUMULATIVE DOSE ADMINISTERED: 8 MG)
     Route: 042
     Dates: start: 20210316, end: 20210316
  2. RANITIDINE HYDROCHLORIDE [Suspect]
     Active Substance: RANITIDINE HYDROCHLORIDE
     Indication: Prostate cancer
     Dosage: 100 MILLIGRAM CYCLE (CUMULATIVE DOSE ADMINISTERED: 100 MG)
     Route: 042
     Dates: start: 20210316, end: 20210316
  3. CABAZITAXEL [Suspect]
     Active Substance: CABAZITAXEL
     Indication: Prostate cancer
     Dosage: 40 MILLIGRAM CYCLE (CUMULATIVE DOSE ADMINISTERED: 40 MG))
     Route: 042
     Dates: start: 20210316, end: 20210316
  4. FIRMAGON [Suspect]
     Active Substance: DEGARELIX ACETATE
     Indication: Prostate cancer
     Dosage: 80 MILLIGRAM CYCLE
     Route: 058
     Dates: start: 20210124, end: 20210124
  5. FIRMAGON [Suspect]
     Active Substance: DEGARELIX ACETATE
     Dosage: 80 MILLIGRAM CYCLE ((CUMULATIVE DOSE ADMINISTERED: 240 MG))
     Route: 042
     Dates: start: 20210323, end: 20210323
  6. POLARAMINE [Suspect]
     Active Substance: DEXCHLORPHENIRAMINE MALEATE
     Indication: Prostate cancer
     Dosage: 5 MILLIGRAM CYCLE (CUMULATIVE DOSE ADMINISTERED: 5 MG)
     Route: 042
     Dates: start: 20210316, end: 20210316
  7. METHYLPREDNISOLONE [Suspect]
     Active Substance: METHYLPREDNISOLONE
     Indication: Prostate cancer
     Dosage: 120 MILLIGRAM CYCLE (CUMULATIVE DOSE ADMINISTERED: 120 MG)
     Route: 042
     Dates: start: 20210316, end: 20210316
  8. RAMIPRIL [Concomitant]
     Active Substance: RAMIPRIL
     Indication: Cardiac failure
     Dosage: 125 MILLIGRAM
     Route: 048
     Dates: start: 202008
  9. KARDEGIC [Concomitant]
     Active Substance: ASPIRIN DL-LYSINE
     Indication: Cardiac failure
     Dosage: 75 MILLIGRAM
     Route: 048
     Dates: start: 200305
  10. SPIRIVA [Concomitant]
     Active Substance: TIOTROPIUM BROMIDE MONOHYDRATE
     Indication: Bronchopneumopathy
     Dosage: UNK
     Route: 055
     Dates: start: 202007
  11. ATORVASTATIN [Concomitant]
     Active Substance: ATORVASTATIN
     Indication: Hypercholesterolaemia
     Dosage: 80 MILLIGRAM
     Route: 048
     Dates: start: 2016
  12. FUROSEMIDE [Concomitant]
     Active Substance: FUROSEMIDE
     Indication: Cardiac failure
     Dosage: 20 MILLIGRAM
     Route: 048
     Dates: start: 202008
  13. BISOPROLOL FUMARATE [Concomitant]
     Active Substance: BISOPROLOL FUMARATE
     Indication: Cardiac failure
     Dosage: 5 MILLIGRAM
     Route: 048
  14. APIXABAN [Concomitant]
     Active Substance: APIXABAN
     Indication: Cardiac failure
     Dosage: 10 MILLIGRAM
     Route: 048
     Dates: start: 202008
  15. PANTOPRAZOLE [Concomitant]
     Active Substance: PANTOPRAZOLE
     Indication: Prophylaxis
     Dosage: 20 MILLIGRAM
     Route: 048
     Dates: start: 202008

REACTIONS (1)
  - Febrile neutropenia [Recovered/Resolved]

NARRATIVE: CASE EVENT DATE: 20210327
